FAERS Safety Report 6053213-X (Version None)
Quarter: 2009Q1

REPORT INFORMATION
  Report Type: 
  Country: None (occurrence: None)
  Receive Date: 20090123
  Receipt Date: 20090105
  Transmission Date: 20090719
  Serious: Yes (Hospitalization)
  Sender: FDA-Public Use
  Company Number: 2009S1000284

PATIENT
  Age: 58 Year
  Sex: Female

DRUGS (5)
  1. VENLAFAXINE HCL [Suspect]
     Indication: INTENTIONAL SELF-INJURY
     Dosage: 75 MG
  2. LINEZOLID [Suspect]
     Indication: STAPHYLOCOCCAL INFECTION
     Dosage: 75 MG; ORAL
     Route: 048
  3. LINEZOLID [Concomitant]
  4. RIFAMPICIN [Concomitant]
  5. VENLAFAXINE [Concomitant]

REACTIONS (4)
  - DISORIENTATION [None]
  - DRUG INTERACTION [None]
  - NERVOUS SYSTEM DISORDER [None]
  - SEROTONIN SYNDROME [None]
